FAERS Safety Report 8806746 (Version 1)
Quarter: 2012Q4

REPORT INFORMATION
  Report Type: Spontaneous
  Country: GB (occurrence: None)
  Receive Date: 20120919
  Receipt Date: 20120919
  Transmission Date: 20130627
  Serious: Yes (Life-Threatening, Hospitalization)
  Sender: FDA-Public Use
  Company Number: 2012SUN00010

PATIENT
  Age: 47 Year
  Sex: Male

DRUGS (10)
  1. GEMCITABINE [Suspect]
     Dosage: 2052 mg, Cyclical, intravenous
     Route: 042
     Dates: start: 20120525, end: 20120621
  2. MYCOBACTERIUM OBUENSE [Suspect]
     Dosage: 1 mg, cyclical, intradermal
     Route: 023
     Dates: start: 20120525, end: 20120621
  3. ORAMORPH [Suspect]
     Route: 048
  4. AUGMENTIN (AMOXICILLIN TRIHYDRATE AND CLAVULANATE POTASSIUM) [Concomitant]
  5. BISACODYL (BISACODYL) [Concomitant]
  6. BUSCOPAN (HYOSCINE BUTYLBROMIDE) [Concomitant]
  7. DOCUSATE (DOCUSATE) [Concomitant]
  8. METOCLOPRAMIDE (METOCLOPRAMIDE) [Concomitant]
  9. MST CONTINUS (MORPHINE SULPHATE) [Concomitant]
  10. OMEPRAZOLE (OMEPRAZOLE) [Concomitant]

REACTIONS (1)
  - Cerebellar infarction [None]
